FAERS Safety Report 9423508 (Version 1)
Quarter: 2013Q3

REPORT INFORMATION
  Report Type: Spontaneous
  Country: US (occurrence: US)
  Receive Date: 20130726
  Receipt Date: 20130726
  Transmission Date: 20140515
  Serious: Yes (Hospitalization, Other)
  Sender: FDA-Public Use
  Company Number: US-ROXANE LABORATORIES, INC.-2013-RO-01247RO

PATIENT
  Age: 2 Year
  Sex: Female

DRUGS (1)
  1. FLECAINIDE [Suspect]
     Route: 048

REACTIONS (2)
  - Accidental exposure to product by child [Unknown]
  - Medication error [Unknown]
